FAERS Safety Report 18573385 (Version 1)
Quarter: 2020Q4

REPORT INFORMATION
  Report Type: Spontaneous
  Country: US (occurrence: US)
  Receive Date: 20201008
  Receipt Date: 20201008
  Transmission Date: 20210114
  Serious: No
  Sender: FDA-Public Use
  Company Number: None

PATIENT
  Age: 5 Decade
  Sex: Female

DRUGS (3)
  1. LOPINAVIR-RITONAVIR [Suspect]
     Active Substance: LOPINAVIR\RITONAVIR
     Indication: COVID-19
     Dates: start: 2020
  2. IMMUNOGLOBULINS, INTRAVENOUS [Suspect]
     Active Substance: HUMAN IMMUNOGLOBULIN G
     Indication: COVID-19
     Dosage: ?          OTHER DOSE:0.4 G/KG;?
     Route: 042
     Dates: start: 2020
  3. HYDROXYCHLOROQUINE [Suspect]
     Active Substance: HYDROXYCHLOROQUINE
     Indication: COVID-19
     Dates: start: 2020

REACTIONS (11)
  - Ophthalmoplegia [None]
  - Dysmetria [None]
  - Ataxia [None]
  - Areflexia [None]
  - Hypoaesthesia [None]
  - Miller Fisher syndrome [None]
  - Paraesthesia [None]
  - Diplopia [None]
  - Facial asymmetry [None]
  - Intentional product use issue [None]
  - Hyporeflexia [None]
